FAERS Safety Report 5535040-2 (Version None)
Quarter: 2007Q4

REPORT INFORMATION
  Report Type: 
  Country: None (occurrence: None)
  Receive Date: 20071203
  Receipt Date: 20071116
  Transmission Date: 20080405
  Serious: Yes (Hospitalization)
  Sender: FDA-Public Use
  Company Number: VNL_00694_2007

PATIENT
  Sex: Male
  Weight: 72.1219 kg

DRUGS (13)
  1. APOKYN [Suspect]
     Indication: PARKINSON'S DISEASE
     Dosage: 0.2 ML BID SUBCUTANEOUS; 0.3 ML QD SUBCUTANETOUS
     Route: 058
     Dates: start: 20070718, end: 20070801
  2. APOKYN [Suspect]
     Indication: PARKINSON'S DISEASE
     Dosage: 0.2 ML BID SUBCUTANEOUS; 0.3 ML QD SUBCUTANETOUS
     Route: 058
     Dates: start: 20070801, end: 20071016
  3. AMANTADINE HCL [Concomitant]
  4. MIRAPEX [Concomitant]
  5. SINEMET CR [Concomitant]
  6. ISORBIDE MONOHYDRATE [Concomitant]
  7. FUROSEMIDE [Concomitant]
  8. PLAVIX [Concomitant]
  9. ASPIRIN [Concomitant]
  10. SIMVASTATIN [Concomitant]
  11. CITALOPRAM [Concomitant]
  12. OXAZEPAM [Concomitant]
  13. METOPROLOL [Concomitant]

REACTIONS (4)
  - DYSPNOEA [None]
  - INJECTION SITE BRUISING [None]
  - PAIN IN EXTREMITY [None]
  - PAIN IN JAW [None]
